FAERS Safety Report 4452041-6 (Version None)
Quarter: 2004Q3

REPORT INFORMATION
  Report Type: 
  Country: None (occurrence: None)
  Receive Date: 20040915
  Receipt Date: 20040915
  Transmission Date: 20050211
  Serious: Yes (Life-Threatening, Hospitalization, Disabling)
  Sender: FDA-Public Use
  Company Number: None

PATIENT
  Age: 30 Year
  Sex: Female
  Weight: 50.4 kg

DRUGS (5)
  1. CARBON DIOXIDE [Suspect]
     Indication: ANAESTHESIA
     Dosage: X1
     Dates: start: 20040518
  2. ATENOLOL [Concomitant]
  3. CATAPRESS [Concomitant]
  4. ENALAPRIL MALEATE [Concomitant]
  5. PROTONIX [Concomitant]

REACTIONS (7)
  - ACTIVITIES OF DAILY LIVING IMPAIRED [None]
  - ACUTE RESPIRATORY DISTRESS SYNDROME [None]
  - ANOXIC ENCEPHALOPATHY [None]
  - CARDIAC ARREST [None]
  - COGNITIVE DISORDER [None]
  - DYSPHAGIA [None]
  - MOBILITY DECREASED [None]
